FAERS Safety Report 4711054-7 (Version None)
Quarter: 2005Q3

REPORT INFORMATION
  Report Type: 
  Country: None (occurrence: None)
  Receive Date: 20050708
  Receipt Date: 20050708
  Transmission Date: 20060218
  Serious: Yes (Life-Threatening)
  Sender: FDA-Public Use
  Company Number: None

PATIENT
  Sex: Female
  Weight: 55.7924 kg

DRUGS (4)
  1. SEROQUEL [Suspect]
     Indication: SCHIZOPHRENIFORM DISORDER
     Dosage: 200 MG ONCE A DAY ORAL
     Route: 048
     Dates: start: 20041210, end: 20050421
  2. DEPAKOTE ER [Concomitant]
  3. DIVALPROEX SODIUM [Concomitant]
  4. QUETIAPINE FUMARATE [Concomitant]

REACTIONS (2)
  - LEUKOPENIA [None]
  - NEUTROPENIA [None]
